FAERS Safety Report 9743214 (Version 2)
Quarter: 2015Q3

REPORT INFORMATION
  Report Type: Spontaneous
  Country: US (occurrence: US)
  Receive Date: 20131210
  Receipt Date: 20150804
  Transmission Date: 20151125
  Serious: No
  Sender: FDA-Public Use
  Company Number: US-GILEAD-2009-0025011

PATIENT
  Age: 63 Year
  Sex: Female
  Weight: 72.57 kg

DRUGS (15)
  1. PARACETAMOL/HYDROCODONE BITARTRATE [Concomitant]
  2. LISINOPRIL. [Concomitant]
     Active Substance: LISINOPRIL
  3. AMARYL [Concomitant]
     Active Substance: GLIMEPIRIDE
  4. ESTRADIOL. [Concomitant]
     Active Substance: ESTRADIOL
  5. METFORMIN HCL [Concomitant]
     Active Substance: METFORMIN HYDROCHLORIDE
  6. BYETTA [Concomitant]
     Active Substance: EXENATIDE
  7. DIOVAN [Concomitant]
     Active Substance: VALSARTAN
  8. ALPHAGAN P [Concomitant]
     Active Substance: BRIMONIDINE TARTRATE
  9. PREDNISONE. [Concomitant]
     Active Substance: PREDNISONE
  10. IMURAN [Concomitant]
     Active Substance: AZATHIOPRINE
  11. LOTEMAX [Concomitant]
     Active Substance: LOTEPREDNOL ETABONATE
  12. LETAIRIS [Suspect]
     Active Substance: AMBRISENTAN
     Indication: PULMONARY ARTERIAL HYPERTENSION
     Route: 048
     Dates: start: 20091007
  13. ZOCOR [Concomitant]
     Active Substance: SIMVASTATIN
  14. FOSAMAX [Concomitant]
     Active Substance: ALENDRONATE SODIUM
  15. SOMA [Concomitant]
     Active Substance: CARISOPRODOL

REACTIONS (6)
  - Urticaria [Unknown]
  - Chest pain [Unknown]
  - Tachycardia [Unknown]
  - Malaise [Unknown]
  - Palpitations [Unknown]
  - Dyspnoea [Unknown]
